FAERS Safety Report 19740530 (Version 3)
Quarter: 2025Q1

REPORT INFORMATION
  Report Type: Report from Study
  Country: CA (occurrence: CA)
  Receive Date: 20210824
  Receipt Date: 20250103
  Transmission Date: 20250409
  Serious: Yes (Life-Threatening, Hospitalization, Other)
  Sender: ACCORD
  Company Number: None

PATIENT
  Age: 52 Year
  Sex: Female

DRUGS (14)
  1. AMLODIPINE [Suspect]
     Active Substance: AMLODIPINE BESYLATE
     Indication: Hypertension
     Route: 048
  2. CANDESARTAN [Suspect]
     Active Substance: CANDESARTAN
     Indication: Product used for unknown indication
     Route: 048
  3. LANTUS [Suspect]
     Active Substance: INSULIN GLARGINE
     Indication: Type 2 diabetes mellitus
     Route: 065
  4. OMALIZUMAB [Suspect]
     Active Substance: OMALIZUMAB
     Indication: Asthma
     Route: 058
  5. CANDESARTAN [Suspect]
     Active Substance: CANDESARTAN
     Indication: Product used for unknown indication
     Route: 048
  6. ALVESCO [Concomitant]
     Active Substance: CICLESONIDE
     Indication: Product used for unknown indication
     Route: 065
  7. FUROSEMIDE [Concomitant]
     Active Substance: FUROSEMIDE
     Indication: Oedema due to cardiac disease
     Route: 048
  8. SYMBICORT [Concomitant]
     Active Substance: BUDESONIDE\FORMOTEROL FUMARATE DIHYDRATE
     Indication: Product used for unknown indication
     Route: 065
  9. TIOTROPIUM BROMIDE [Concomitant]
     Active Substance: TIOTROPIUM BROMIDE
     Indication: Product used for unknown indication
     Route: 065
  10. VANCOMYCIN [Concomitant]
     Active Substance: VANCOMYCIN
     Indication: Product used for unknown indication
     Route: 042
  11. VENTOLIN [Concomitant]
     Active Substance: ALBUTEROL SULFATE
     Indication: Product used for unknown indication
     Route: 065
  12. BUDESONIDE\FORMOTEROL FUMARATE [Concomitant]
     Active Substance: BUDESONIDE\FORMOTEROL FUMARATE
  13. PREDNISONE [Concomitant]
     Active Substance: PREDNISONE
     Indication: Asthma
  14. OMALIZUMAB [Suspect]
     Active Substance: OMALIZUMAB
     Indication: Asthma
     Route: 058

REACTIONS (36)
  - Dyspnoea [Not Recovered/Not Resolved]
  - Angina pectoris [Recovered/Resolved]
  - Asthma [Recovered/Resolved]
  - Blood pressure increased [Recovered/Resolved]
  - Contusion [Recovered/Resolved]
  - Cough [Not Recovered/Not Resolved]
  - Eye allergy [Recovered/Resolved]
  - Back pain [Not Recovered/Not Resolved]
  - Chromaturia [Not Recovered/Not Resolved]
  - Exposure to allergen [Recovered/Resolved]
  - Weight fluctuation [Recovered/Resolved]
  - Viral infection [Recovered/Resolved]
  - Sepsis [Not Recovered/Not Resolved]
  - Procedural pain [Not Recovered/Not Resolved]
  - Pneumonia [Recovered/Resolved]
  - Ocular hyperaemia [Not Recovered/Not Resolved]
  - Nasopharyngitis [Recovered/Resolved]
  - Fatigue [Recovered/Resolved]
  - Wheezing [Not Recovered/Not Resolved]
  - Weight decreased [Recovered/Resolved]
  - Type 2 diabetes mellitus [Recovered/Resolved]
  - Proteinuria [Not Recovered/Not Resolved]
  - Post procedural infection [Recovered/Resolved]
  - Pollakiuria [Not Recovered/Not Resolved]
  - Oedema peripheral [Recovered/Resolved]
  - Obstructive airways disorder [Recovered/Resolved]
  - Malaise [Not Recovered/Not Resolved]
  - Intestinal obstruction [Recovered/Resolved]
  - Heart rate increased [Recovered/Resolved]
  - Fibromuscular dysplasia [Recovered/Resolved]
  - Eye pruritus [Not Recovered/Not Resolved]
  - Eye inflammation [Not Recovered/Not Resolved]
  - Illness [Recovered/Resolved]
  - Incorrect dose administered [Recovered/Resolved]
  - Pain [Unknown]
  - Poisoning [Recovered/Resolved]
